FAERS Safety Report 10732079 (Version 1)
Quarter: 2015Q1

REPORT INFORMATION
  Report Type: Spontaneous
  Country: US (occurrence: None)
  Receive Date: 20150120
  Receipt Date: 20150120
  Transmission Date: 20150721
  Serious: Yes (Death)
  Sender: FDA-Public Use
  Company Number: 2015010074

PATIENT
  Age: 46 Year
  Sex: Female

DRUGS (7)
  1. HYDROCODONE (HYDROCODONE) [Suspect]
     Active Substance: HYDROCODONE
  2. OXYCODONE (OXYCODONE) [Suspect]
     Active Substance: OXYCODONE
  3. FENTANYL (FENTANYL) [Suspect]
     Active Substance: FENTANYL
  4. CLONAZEPAM (CLONAZEPAM) [Suspect]
     Active Substance: CLONAZEPAM
  5. CYCLOBENZAPRINE (CYCLOBENZAPRINE) [Suspect]
     Active Substance: CYCLOBENZAPRINE
  6. ACETAMINOPHEN (ACETAMINOPHEN) [Suspect]
     Active Substance: ACETAMINOPHEN
  7. TRAZODONE [Suspect]
     Active Substance: TRAZODONE HYDROCHLORIDE

REACTIONS (2)
  - Completed suicide [None]
  - Exposure via ingestion [None]

NARRATIVE: CASE EVENT DATE: 2013
